FAERS Safety Report 6544892-9 (Version None)
Quarter: 2010Q1

REPORT INFORMATION
  Report Type: 
  Country: None (occurrence: None)
  Receive Date: 20100121
  Receipt Date: 20100112
  Transmission Date: 20100710
  Serious: Yes (Other)
  Sender: FDA-Public Use
  Company Number: US-PFIZER INC-2009314731

PATIENT
  Sex: Male
  Weight: 113.4 kg

DRUGS (5)
  1. LIPITOR [Suspect]
     Indication: CORONARY ARTERY BYPASS
     Dosage: 10 MG, 1X/DAY
     Route: 048
  2. DRONEDARONE [Suspect]
     Indication: ATRIAL FLUTTER
     Dosage: 400 MG, 2X/DAY
     Route: 048
     Dates: start: 20091101
  3. WARFARIN [Concomitant]
     Dosage: 3 MG, UNK
     Route: 048
  4. TOPROL-XL [Concomitant]
     Dosage: 25 MG, UNK
     Route: 048
  5. ACETYLSALICYLIC ACID [Concomitant]
     Dosage: 81 MG, UNK
     Route: 048

REACTIONS (2)
  - FALL [None]
  - TENDON RUPTURE [None]
